FAERS Safety Report 6384544-1 (Version None)
Quarter: 2009Q3

REPORT INFORMATION
  Report Type: 
  Country: None (occurrence: None)
  Receive Date: 20090928
  Receipt Date: 20090916
  Transmission Date: 20100115
  Serious: Yes (Other)
  Sender: FDA-Public Use
  Company Number: GXKR2009GB10351

PATIENT
  Sex: Female

DRUGS (9)
  1. ONDANSETRON                 (ONDANSETRON) UNKNOWN [Suspect]
     Dosage: 4 MG, INTRAVENOUS
     Route: 042
  2. ATRACURIUM BESYLATE [Concomitant]
  3. CEFTRIAXONE [Concomitant]
  4. DEXAMETHASONE TAB [Concomitant]
  5. METRONIDAZOLE [Concomitant]
  6. MORPHINE [Concomitant]
  7. PARACETAMOL (PARACETAMOL) [Concomitant]
  8. PROPOFOL [Concomitant]
  9. REMIFENTANIL (REMIFENTANIL) [Concomitant]

REACTIONS (1)
  - MUSCLE SPASMS [None]
